FAERS Safety Report 5580079-4 (Version None)
Quarter: 2007Q4

REPORT INFORMATION
  Report Type: 
  Country: None (occurrence: None)
  Receive Date: 20071227
  Receipt Date: 20071227
  Transmission Date: 20080405
  Serious: Yes (Hospitalization)
  Sender: FDA-Public Use
  Company Number: None

PATIENT
  Sex: Male
  Weight: 66.9 kg

DRUGS (2)
  1. CYTARABINE [Suspect]
     Dosage: 41600 MG
     Dates: end: 20070610
  2. ELSPAR [Suspect]
     Dosage: 20800 MG
     Dates: end: 20070610

REACTIONS (2)
  - NEUTROPENIA [None]
  - PYREXIA [None]
